FAERS Safety Report 5578282-2 (Version None)
Quarter: 2007Q4

REPORT INFORMATION
  Report Type: 
  Country: None (occurrence: None)
  Receive Date: 20071227
  Receipt Date: 20071207
  Transmission Date: 20080405
  Serious: Yes (Other)
  Sender: FDA-Public Use
  Company Number: URSO-2007-212 F-UP 1

PATIENT
  Age: 89 Year
  Sex: Female

DRUGS (4)
  1. URSO 250 [Suspect]
     Indication: CHOLELITHIASIS
     Dosage: 600 MG QD ORAL
     Route: 048
     Dates: start: 20071108, end: 20071109
  2. LOXONIN (LOXOPROFEN SODIUM) [Concomitant]
  3. FAMOTIDINE [Concomitant]
  4. GASMOTIN (MOSAPRIDE CITRATE) [Concomitant]

REACTIONS (5)
  - GLOSSODYNIA [None]
  - HYPERSENSITIVITY [None]
  - PHARYNGEAL OEDEMA [None]
  - PYREXIA [None]
  - TONGUE OEDEMA [None]
